FAERS Safety Report 13765650 (Version 1)
Quarter: 2017Q3

REPORT INFORMATION
  Report Type: Spontaneous
  Country: FR (occurrence: FR)
  Receive Date: 20170718
  Receipt Date: 20170718
  Transmission Date: 20171127
  Serious: Yes (Hospitalization)
  Sender: FDA-Public Use
  Company Number: FR-MERCK KGAA-2023455

PATIENT
  Age: 57 Year
  Sex: Female

DRUGS (3)
  1. NOVOTHYROX [Suspect]
     Active Substance: LEVOTHYROXINE SODIUM
     Indication: AUTOIMMUNE THYROIDITIS
     Dates: start: 20170505
  2. TERALITHE [Concomitant]
     Active Substance: LITHIUM CARBONATE
  3. OMEPRAZOLE. [Concomitant]
     Active Substance: OMEPRAZOLE

REACTIONS (8)
  - Fatigue [Not Recovered/Not Resolved]
  - Blood thyroid stimulating hormone abnormal [Unknown]
  - Blood sodium increased [Recovered/Resolved]
  - Blindness transient [Recovered/Resolved]
  - Muscle tightness [Not Recovered/Not Resolved]
  - Mood swings [Not Recovered/Not Resolved]
  - Abdominal pain [Not Recovered/Not Resolved]
  - Headache [Not Recovered/Not Resolved]

NARRATIVE: CASE EVENT DATE: 2017
